FAERS Safety Report 19847518 (Version 1)
Quarter: 2021Q3

REPORT INFORMATION
  Report Type: Spontaneous
  Country: DE (occurrence: DE)
  Receive Date: 20210917
  Receipt Date: 20210917
  Transmission Date: 20211014
  Serious: Yes (Hospitalization)
  Sender: FDA-Public Use
  Company Number: DE-TEVA-2021-DE-1952449

PATIENT
  Age: 33 Year
  Sex: Female
  Weight: 75 kg

DRUGS (2)
  1. METAMIZOL [Suspect]
     Active Substance: METAMIZOLE SODIUM
     Dosage: 500 MG, UNKNOWN
     Route: 048
  2. IBUPROFEN. [Suspect]
     Active Substance: IBUPROFEN
     Route: 048

REACTIONS (7)
  - Asthenia [Not Recovered/Not Resolved]
  - Eye swelling [Not Recovered/Not Resolved]
  - Fine motor skill dysfunction [Not Recovered/Not Resolved]
  - Tension headache [Not Recovered/Not Resolved]
  - Product administration error [Unknown]
  - Headache [Not Recovered/Not Resolved]
  - Sensory disturbance [Not Recovered/Not Resolved]
